FAERS Safety Report 9108861 (Version 3)
Quarter: 2013Q2

REPORT INFORMATION
  Report Type: Spontaneous
  Country: JP (occurrence: JP)
  Receive Date: 20130222
  Receipt Date: 20130402
  Transmission Date: 20140414
  Serious: Yes (Hospitalization, Other)
  Sender: FDA-Public Use
  Company Number: PHHY2013JP017103

PATIENT
  Age: 40 Year
  Sex: Female

DRUGS (4)
  1. APRESOLINE [Suspect]
     Indication: HYPERTENSION
     Dosage: 30 MG, DAILY
     Route: 048
  2. METHYLDOPA [Suspect]
     Indication: HYPERTENSION
     Dosage: 2250 MG, DAILY
     Route: 048
  3. METHYLDOPA [Suspect]
     Dosage: 750 MG, DAILY
     Route: 048
  4. NIFEDIPINE [Concomitant]
     Indication: HYPERTENSION
     Dosage: 40 MG, DAILY

REACTIONS (4)
  - Premature delivery [Unknown]
  - Premature labour [Unknown]
  - Blood pressure inadequately controlled [Recovered/Resolved]
  - Exposure during pregnancy [Unknown]
